FAERS Safety Report 13758304 (Version 3)
Quarter: 2018Q3

REPORT INFORMATION
  Report Type: Spontaneous
  Country: US (occurrence: US)
  Receive Date: 20170717
  Receipt Date: 20180704
  Transmission Date: 20181010
  Serious: No
  Sender: FDA-Public Use
  Company Number: US-PFIZER INC-2017307945

PATIENT
  Age: 58 Year
  Sex: Female

DRUGS (1)
  1. VENLAFAXINE HCL [Suspect]
     Active Substance: VENLAFAXINE HYDROCHLORIDE
     Dosage: 150 MG, QUANTITY = 60 / DAY SUPPLY = 30)

REACTIONS (3)
  - Drug intolerance [Unknown]
  - Loss of personal independence in daily activities [Unknown]
  - Drug ineffective [Unknown]
